FAERS Safety Report 5413138-7 (Version None)
Quarter: 2007Q3

REPORT INFORMATION
  Report Type: 
  Country: None (occurrence: None)
  Receive Date: 20070810
  Receipt Date: 20070725
  Transmission Date: 20080115
  Serious: Yes (Hospitalization, Other)
  Sender: FDA-Public Use
  Company Number: DSA_30328_2007

PATIENT
  Age: 73 Year
  Sex: Female
  Weight: 92.9874 kg

DRUGS (8)
  1. VASOTEC [Suspect]
     Indication: DRUG USE FOR UNKNOWN INDICATION
     Dosage: (10 MG BID ORAL)
     Route: 048
     Dates: end: 20070727
  2. HUMULIN /00646001/ [Concomitant]
  3. NIFEDIPINE [Concomitant]
  4. REGLAN /00041901/ [Concomitant]
  5. IBU [Concomitant]
  6. ASPIRIN [Concomitant]
  7. GLYBURIDE [Concomitant]
  8. METFORMIN HCL [Concomitant]

REACTIONS (13)
  - APHASIA [None]
  - BLOOD GLUCOSE INCREASED [None]
  - BLOOD PRESSURE SYSTOLIC INCREASED [None]
  - CEREBROVASCULAR ACCIDENT [None]
  - DYSPEPSIA [None]
  - LUNG INFECTION [None]
  - MUSCULOSKELETAL PAIN [None]
  - NAUSEA [None]
  - OSTEOARTHRITIS [None]
  - PRODUCTIVE COUGH [None]
  - THROAT IRRITATION [None]
  - VOMITING [None]
  - WALKING AID USER [None]
